FAERS Safety Report 4632410-1 (Version None)
Quarter: 2005Q2

REPORT INFORMATION
  Report Type: 
  Country: None (occurrence: None)
  Receive Date: 20050411
  Receipt Date: 20050331
  Transmission Date: 20051028
  Serious: Yes (Other)
  Sender: FDA-Public Use
  Company Number: US-GLAXOSMITHKLINE-A0552064A

PATIENT
  Age: 47 Year
  Sex: Female

DRUGS (2)
  1. TUMS E-X TABLETS, ASSORTED BERRIES [Suspect]
     Indication: DYSPEPSIA
     Route: 048
  2. TUMS REGULAR TABLETS, PEPPERMINT [Suspect]
     Indication: DYSPEPSIA
     Route: 048

REACTIONS (4)
  - COUGH [None]
  - DRUG HYPERSENSITIVITY [None]
  - MYOCARDIAL INFARCTION [None]
  - THIRST [None]
